FAERS Safety Report 23334542 (Version 1)
Quarter: 2023Q4

REPORT INFORMATION
  Report Type: Spontaneous
  Country: FR (occurrence: FR)
  Receive Date: 20231224
  Receipt Date: 20231224
  Transmission Date: 20240109
  Serious: Yes (Hospitalization)
  Sender: FDA-Public Use
  Company Number: None

PATIENT
  Age: 39 Year
  Weight: 65 kg

DRUGS (5)
  1. FLUOROURACIL [Suspect]
     Active Substance: FLUOROURACIL
     Indication: Adenocarcinoma gastric
     Dosage: BOLUS 400MG/M2 SUR 15 MIN PUIS 2400MG/M2 SUR 48H
     Route: 042
     Dates: start: 20231109, end: 20231109
  2. METHYLPREDNISOLONE [Suspect]
     Active Substance: METHYLPREDNISOLONE
     Indication: Chemotherapy side effect prophylaxis
     Dosage: 80MG SUR 10MIN
     Route: 042
     Dates: start: 20231109, end: 20231109
  3. ONDANSETRON HYDROCHLORIDE [Suspect]
     Active Substance: ONDANSETRON HYDROCHLORIDE
     Indication: Chemotherapy side effect prophylaxis
     Dosage: 3MG SUR 10 MIN
     Route: 042
     Dates: start: 20231109, end: 20231109
  4. POLARAMINE [Suspect]
     Active Substance: DEXCHLORPHENIRAMINE MALEATE
     Indication: Chemotherapy side effect prophylaxis
     Dosage: 5MG SUR 10MIN
     Route: 042
     Dates: start: 20231109, end: 20231109
  5. OXALIPLATIN [Suspect]
     Active Substance: OXALIPLATIN
     Indication: Adenocarcinoma gastric
     Dosage: 85MG/M2 SUR 2H
     Route: 042
     Dates: start: 20231109, end: 20231109

REACTIONS (3)
  - Aphasia [Recovering/Resolving]
  - Dysarthria [Recovering/Resolving]
  - Malaise [Recovered/Resolved]

NARRATIVE: CASE EVENT DATE: 20231109
